FAERS Safety Report 14287046 (Version 1)
Quarter: 2017Q4

REPORT INFORMATION
  Report Type: Spontaneous
  Country: US (occurrence: US)
  Receive Date: 20171214
  Receipt Date: 20171214
  Transmission Date: 20180321
  Serious: No
  Sender: FDA-Public Use
  Company Number: US-ASTELLAS-2017US035186

PATIENT
  Sex: Female

DRUGS (1)
  1. TARCEVA [Suspect]
     Active Substance: ERLOTINIB HYDROCHLORIDE
     Indication: BRONCHIAL CARCINOMA
     Dosage: 75 MG, ONCE DAILY (TAKING 75 MG (3 TABLETS OF 25 MG) ONCE DAILY)
     Route: 048
     Dates: start: 20141230, end: 201708

REACTIONS (2)
  - Drug ineffective [Unknown]
  - No adverse event [Unknown]
